FAERS Safety Report 17561616 (Version 2)
Quarter: 2020Q1

REPORT INFORMATION
  Report Type: Spontaneous
  Country: HU (occurrence: HU)
  Receive Date: 20200319
  Receipt Date: 20200323
  Transmission Date: 20200409
  Serious: Yes (Other)
  Sender: FDA-Public Use
  Company Number: HU-PFIZER INC-2020115844

PATIENT
  Age: 35 Year
  Sex: Female
  Weight: 53 kg

DRUGS (6)
  1. MONTELUKAST [Suspect]
     Active Substance: MONTELUKAST SODIUM
     Dosage: 10 MG, UNK  (DRUG TAKEN BY THE FATHER)
     Dates: start: 20190401
  2. CIPRALEX [Suspect]
     Active Substance: ESCITALOPRAM OXALATE
     Indication: OBSESSIVE-COMPULSIVE DISORDER
     Dosage: 20 MG, DAILY (1 TBL)  (DRUG TAKEN BY THE FATHER)
     Dates: start: 20120312
  3. LIPIDIL [Suspect]
     Active Substance: FENOFIBRATE
     Dosage: 267 MG, UNK  (DRUG TAKEN BY THE FATHER)
     Dates: start: 20181213
  4. FRAXIPARINE [Suspect]
     Active Substance: NADROPARIN CALCIUM
     Indication: FACTOR V LEIDEN MUTATION
     Dosage: 0.4 ML, 1X/DAY
     Route: 058
     Dates: start: 20190712
  5. XALATAN [Suspect]
     Active Substance: LATANOPROST
     Indication: GLAUCOMA
     Dosage: 1-1 DROP, DAILY (DRUG TAKEN BY THE FATHER)
     Dates: start: 20180424
  6. EUTHYROX [Suspect]
     Active Substance: LEVOTHYROXINE SODIUM
     Indication: HYPOTHYROIDISM
     Dosage: 50 UG, DAILY (1 TABLET) CONTINOUS SINCE SPRING OF 2010
     Dates: start: 2010

REACTIONS (3)
  - Maternal exposure during pregnancy [Unknown]
  - Paternal exposure during pregnancy [Unknown]
  - Abortion spontaneous [Unknown]
